FAERS Safety Report 4292536-1 (Version None)
Quarter: 2004Q1

REPORT INFORMATION
  Report Type: 
  Country: None (occurrence: None)
  Receive Date: 20040126
  Receipt Date: 20031031
  Transmission Date: 20041129
  Serious: No
  Sender: FDA-Public Use
  Company Number: USA031049308

PATIENT
  Age: 44 Year
  Sex: Female
  Weight: 73 kg

DRUGS (3)
  1. FORTEO [Suspect]
     Indication: OSTEOPOROSIS
     Dosage: 20 UG/DAY
     Dates: start: 20030901
  2. BUSPAR [Concomitant]
  3. CALCIUM WITH VITAMIN D [Concomitant]

REACTIONS (3)
  - HEART RATE INCREASED [None]
  - ILL-DEFINED DISORDER [None]
  - PHARYNGOLARYNGEAL PAIN [None]
